FAERS Safety Report 8216199-5 (Version None)
Quarter: 2012Q1

REPORT INFORMATION
  Report Type: 
  Country: None (occurrence: None)
  Receive Date: 20120229
  Receipt Date: 20110808
  Transmission Date: 20120608
  Serious: Yes (Death, Other)
  Sender: FDA-Public Use
  Company Number: PHHY2011US63447

PATIENT
  Age: 56 Year
  Sex: Male
  Weight: 100 kg

DRUGS (12)
  1. NEORAL [Suspect]
     Dosage: 250 MG, BID, ORAL
     Route: 048
     Dates: end: 20110201
  2. ACYCLOVIR [Concomitant]
  3. METOPROLOL TARTRATE [Concomitant]
  4. AMITRIPTYLINE HYDROCHLORIDE [Concomitant]
  5. PRILOSEC [Concomitant]
  6. CYTARABINE [Concomitant]
  7. IDARUBICIN HCL [Concomitant]
  8. PENICILLIN  V POTASSIUM (PHENOXYMETHYLPENICILLIN POTASSIUM) [Concomitant]
  9. ALPRAZOLAM [Concomitant]
  10. PROMETHAZINE HYDROCHLORIDE [Concomitant]
  11. MORPHINE SULFATE INJ [Concomitant]
  12. ALLOPURINOL [Concomitant]

REACTIONS (9)
  - PNEUMONIA [None]
  - HYPOXIA [None]
  - ACUTE MYELOID LEUKAEMIA [None]
  - FEBRILE NEUTROPENIA [None]
  - LEUKAEMIA RECURRENT [None]
  - FATIGUE [None]
  - SEPSIS [None]
  - SOMNOLENCE [None]
  - HYPOTENSION [None]
